FAERS Safety Report 13862781 (Version 1)
Quarter: 2017Q3

REPORT INFORMATION
  Report Type: Spontaneous
  Country: DK (occurrence: DK)
  Receive Date: 20170814
  Receipt Date: 20170814
  Transmission Date: 20171127
  Serious: Yes (Life-Threatening, Hospitalization)
  Sender: FDA-Public Use
  Company Number: DK-ACCORD-056938

PATIENT
  Age: 48 Year
  Sex: Male

DRUGS (5)
  1. ISOPHANE INSULIN [Suspect]
     Active Substance: INSULIN NOS
     Indication: PRODUCT USED FOR UNKNOWN INDICATION
  2. FUROSEMIDE. [Suspect]
     Active Substance: FUROSEMIDE
     Indication: PRODUCT USED FOR UNKNOWN INDICATION
     Dosage: HIGH DOSES OF FUROSEMIDE
  3. LOSARTAN. [Concomitant]
     Active Substance: LOSARTAN
     Indication: PRODUCT USED FOR UNKNOWN INDICATION
  4. METOPROLOL. [Concomitant]
     Active Substance: METOPROLOL
     Indication: PRODUCT USED FOR UNKNOWN INDICATION
  5. NOVORAPID [Suspect]
     Active Substance: INSULIN ASPART
     Indication: PRODUCT USED FOR UNKNOWN INDICATION

REACTIONS (6)
  - Rhabdomyolysis [Recovered/Resolved]
  - Electrocardiogram QT prolonged [Recovered/Resolved]
  - Metabolic alkalosis [Recovered/Resolved]
  - Hypokalaemia [Recovered/Resolved]
  - Electrocardiogram ST segment depression [Recovered/Resolved]
  - Paralysis [Recovered/Resolved]
